FAERS Safety Report 4334541-2 (Version None)
Quarter: 2004Q2

REPORT INFORMATION
  Report Type: 
  Country: None (occurrence: None)
  Receive Date: 20040407
  Receipt Date: 20040325
  Transmission Date: 20050107
  Serious: Yes (Hospitalization)
  Sender: FDA-Public Use
  Company Number: FR-GLAXOSMITHKLINE-B0328134A

PATIENT
  Age: 60 Year
  Sex: Male

DRUGS (4)
  1. ZOPHREN [Suspect]
     Indication: PROPHYLAXIS OF NAUSEA AND VOMITING
     Dosage: 2UNIT PER DAY
     Route: 042
     Dates: start: 20040210, end: 20040201
  2. VOGALENE [Suspect]
     Dosage: 6UNIT PER DAY
     Route: 042
     Dates: start: 20040210, end: 20040201
  3. TAXOTERE [Suspect]
     Dosage: 2UNIT PER DAY
     Route: 042
     Dates: start: 20040210, end: 20040201
  4. GEMZAR [Suspect]
     Dosage: 2UNIT PER DAY
     Route: 042
     Dates: start: 20040210, end: 20040201

REACTIONS (4)
  - ANXIETY [None]
  - ASTHENIA [None]
  - HICCUPS [None]
  - INSOMNIA [None]
